FAERS Safety Report 5510221-2 (Version None)
Quarter: 2007Q4

REPORT INFORMATION
  Report Type: 
  Country: None (occurrence: None)
  Receive Date: 20071106
  Receipt Date: 20071106
  Transmission Date: 20080405
  Serious: Yes (Other)
  Sender: FDA-Public Use
  Company Number: None

PATIENT
  Sex: Female

DRUGS (11)
  1. REVLIMID [Suspect]
     Indication: MULTIPLE MYELOMA
     Dosage: 25MG DAILY 21D/28D PO
     Route: 048
  2. DEXAMETHASONE [Concomitant]
  3. PAMIDRONATE DISODIUM [Concomitant]
  4. LEVOTHROID [Concomitant]
  5. OMEPRAZOLE [Concomitant]
  6. TIMOLOL EYE DROP [Concomitant]
  7. ADVAIR DISKUS 100/50 [Concomitant]
  8. PROAIR HFA [Concomitant]
  9. NASAREL [Concomitant]
  10. COZAAR [Concomitant]
  11. HYDROCHLOROTHIAZIDE [Concomitant]

REACTIONS (6)
  - CONDITION AGGRAVATED [None]
  - DRUG HYPERSENSITIVITY [None]
  - DRUG INTOLERANCE [None]
  - NEUROPATHY [None]
  - PRURITUS [None]
  - PRURITUS GENITAL [None]
